FAERS Safety Report 9550130 (Version 1)
Quarter: 2013Q3

REPORT INFORMATION
  Report Type: Spontaneous
  Country: US (occurrence: US)
  Receive Date: 20130924
  Receipt Date: 20130924
  Transmission Date: 20140515
  Serious: Yes (Other)
  Sender: FDA-Public Use
  Company Number: US-RB-058603-13

PATIENT
  Age: 54 Year
  Sex: Male

DRUGS (2)
  1. SUBOXONE FILM [Suspect]
     Dosage: SUBOXONE FILM
     Route: 060
     Dates: start: 2010, end: 20130827
  2. SUBOXONE FILM [Suspect]
     Indication: DRUG DEPENDENCE
     Dosage: SUBOXONE FILM; TOOK ONE PIECE OF UNKNOWN SIZE
     Route: 060
     Dates: start: 20130903, end: 20130903

REACTIONS (6)
  - Arthropathy [Recovered/Resolved]
  - Road traffic accident [Recovered/Resolved]
  - Blood glucose increased [Unknown]
  - Drug withdrawal syndrome [Not Recovered/Not Resolved]
  - Wrong technique in drug usage process [Recovered/Resolved]
  - Substance abuse [Recovered/Resolved]
